FAERS Safety Report 10444257 (Version 6)
Quarter: 2015Q2

REPORT INFORMATION
  Report Type: Spontaneous
  Country: US (occurrence: US)
  Receive Date: 20140910
  Receipt Date: 20150506
  Transmission Date: 20150821
  Serious: Yes (Hospitalization, Other)
  Sender: FDA-Public Use
  Company Number: US-SA-2014SA122324

PATIENT
  Age: 82 Year
  Sex: Male
  Weight: 80.72 kg

DRUGS (19)
  1. ASPIRIN. [Concomitant]
     Active Substance: ASPIRIN
  2. COENZYME Q10 [Concomitant]
     Active Substance: UBIDECARENONE
  3. ELIQUIS [Suspect]
     Active Substance: APIXABAN
     Indication: TRANSIENT ISCHAEMIC ATTACK
     Route: 065
     Dates: start: 20140313
  4. METOPROLOL [Concomitant]
     Active Substance: METOPROLOL
     Dosage: 25 MG ONE-HALF TAB TWICE DAILY
     Dates: start: 201401
  5. LEUPROLIDE [Concomitant]
     Active Substance: LEUPROLIDE
  6. VITAMIN D3 [Concomitant]
     Active Substance: CHOLECALCIFEROL
  7. PLAVIX [Suspect]
     Active Substance: CLOPIDOGREL BISULFATE
     Indication: THROMBOSIS
     Route: 048
     Dates: start: 201402
  8. PLAVIX [Suspect]
     Active Substance: CLOPIDOGREL BISULFATE
     Indication: THROMBOSIS
     Route: 048
     Dates: end: 201401
  9. CALCIUM [Concomitant]
     Active Substance: CALCIUM
  10. MAGNESIUM OXIDE. [Concomitant]
     Active Substance: MAGNESIUM OXIDE
  11. ELIQUIS [Suspect]
     Active Substance: APIXABAN
     Indication: TRANSIENT ISCHAEMIC ATTACK
     Route: 065
     Dates: start: 20140122, end: 20140211
  12. POLYCARBOPHIL CALCIUM [Concomitant]
     Active Substance: CALCIUM POLYCARBOPHIL
  13. PANTHENOL/RETINOL/THIAMINE HYDROCHLORIDE/ASCORBIC ACID/ERGOCALCIFEROL/FOLIC ACID/RIBOFLAVIN/NICOTINA [Concomitant]
  14. DILTIAZEM [Concomitant]
     Active Substance: DILTIAZEM
  15. LEUPRORELIN [Concomitant]
     Active Substance: LEUPROLIDE ACETATE
  16. PRAVASTATIN SODIUM. [Suspect]
     Active Substance: PRAVASTATIN SODIUM
     Indication: HYPERLIPIDAEMIA
     Route: 065
  17. VITAMIN C [Concomitant]
     Active Substance: ASCORBIC ACID
  18. KRILL OIL [Concomitant]
     Active Substance: DIETARY SUPPLEMENT
  19. NITROGLYCERINE [Concomitant]
     Active Substance: NITROGLYCERIN

REACTIONS (8)
  - Colitis [Unknown]
  - Dizziness [Unknown]
  - Transient ischaemic attack [Unknown]
  - Blindness [Unknown]
  - Cerebrovascular accident [Unknown]
  - Fall [Unknown]
  - Vertigo [Unknown]
  - Cerebral haemorrhage [Unknown]

NARRATIVE: CASE EVENT DATE: 20140211
